FAERS Safety Report 10775489 (Version 2)
Quarter: 2015Q1

REPORT INFORMATION
  Report Type: Spontaneous
  Country: GB (occurrence: None)
  Receive Date: 20150205
  Receipt Date: 20150225
  Transmission Date: 20150721
  Serious: Yes (Death, Other)
  Sender: FDA-Public Use
  Company Number: 2015-10565

PATIENT
  Age: 59 Year
  Sex: Male
  Weight: 119 kg

DRUGS (4)
  1. FOLINIC ACID [Concomitant]
     Active Substance: LEUCOVORIN
  2. IRINOTECAN [Concomitant]
     Active Substance: IRINOTECAN
  3. EYLEA [Suspect]
     Active Substance: AFLIBERCEPT
     Indication: COLORECTAL CANCER METASTATIC
     Dosage: 1/1 CYCLICAL
     Route: 040
     Dates: start: 20141001, end: 20141029
  4. 5-FU (FLUOROURACIL) [Concomitant]
     Active Substance: FLUOROURACIL

REACTIONS (11)
  - Pulmonary haemorrhage [None]
  - Mitral valve disease [None]
  - Arteriosclerosis [None]
  - Arteriosclerosis coronary artery [None]
  - Pneumonitis [None]
  - Respiratory failure [None]
  - Cardiomegaly [None]
  - Cerebral arteriosclerosis [None]
  - Left ventricular hypertrophy [None]
  - Pulmonary artery thrombosis [None]
  - Aortic arteriosclerosis [None]
